FAERS Safety Report 23730138 (Version 1)
Quarter: 2024Q2

REPORT INFORMATION
  Report Type: Spontaneous
  Country: US (occurrence: US)
  Receive Date: 20240411
  Receipt Date: 20240411
  Transmission Date: 20240716
  Serious: No
  Sender: FDA-Public Use
  Company Number: US-ALKEM LABORATORIES LIMITED-US-ALKEM-2024-04771

PATIENT
  Age: 16 Month
  Sex: Male

DRUGS (8)
  1. CLOBAZAM [Suspect]
     Active Substance: CLOBAZAM
     Indication: Status epilepticus
     Dosage: 2.6 MILLIGRAM/KILOGRAM, QD
     Route: 065
  2. LEVETIRACETAM [Suspect]
     Active Substance: LEVETIRACETAM
     Indication: Status epilepticus
     Dosage: 30 MILLIGRAM/KILOGRAM, QD
     Route: 065
  3. LEVETIRACETAM [Suspect]
     Active Substance: LEVETIRACETAM
     Dosage: 163 MILLIGRAM/KILOGRAM, QD
     Route: 065
  4. TOPIRAMATE [Suspect]
     Active Substance: TOPIRAMATE
     Indication: Status epilepticus
     Dosage: 12 MILLIGRAM/KILOGRAM, QD
     Route: 065
  5. CLONAZEPAM [Suspect]
     Active Substance: CLONAZEPAM
     Indication: Status epilepticus
     Dosage: UNK
     Route: 065
  6. PYRIDOXINE [Suspect]
     Active Substance: PYRIDOXINE
     Indication: Status epilepticus
     Dosage: 100 MILLIGRAM (3 DOSES)
     Route: 042
  7. PYRIDOXINE [Suspect]
     Active Substance: PYRIDOXINE
     Dosage: 30MG/KG/DAY (MAINTENANCE DOSE))
     Route: 042
  8. PHENOBARBITAL [Suspect]
     Active Substance: PHENOBARBITAL
     Indication: Status epilepticus
     Dosage: 5.2 MILLIGRAM/KILOGRAM, QD
     Route: 065

REACTIONS (2)
  - Somnolence [Unknown]
  - Therapy non-responder [Unknown]
